FAERS Safety Report 5825972-X (Version None)
Quarter: 2008Q3

REPORT INFORMATION
  Report Type: 
  Country: None (occurrence: None)
  Receive Date: 20080729
  Receipt Date: 20080724
  Transmission Date: 20090109
  Serious: Yes (Death, Life-Threatening, Hospitalization, Disabling, Other)
  Sender: FDA-Public Use
  Company Number: PHFR2006GB01932

PATIENT
  Sex: Male

DRUGS (22)
  1. CLOZARIL [Suspect]
     Dosage: 300MG DAILY
     Route: 048
     Dates: start: 19990409
  2. CLOZARIL [Suspect]
     Dosage: 75 MG, BID
     Route: 048
  3. CLOZARIL [Suspect]
     Dosage: 125 MG, QD
     Route: 048
  4. ARIPIPRAZOLE [Suspect]
     Dosage: 5 MG
     Route: 065
  5. CLONAZEPAM [Concomitant]
     Indication: RESTLESS LEGS SYNDROME
     Dosage: 0.5 MG
     Route: 048
     Dates: start: 20060614
  6. ACETAMINOPHEN [Concomitant]
     Indication: PAIN
     Dosage: 500 MG, BID
     Route: 048
  7. ESOMEPRAZOLE [Concomitant]
     Indication: GASTRITIS
     Dosage: 40 MG, QD
     Route: 048
     Dates: start: 20020101
  8. ESOMEPRAZOLE [Concomitant]
     Dosage: 40 MG, QD
     Route: 048
     Dates: start: 20060530
  9. DOMPERIDONE [Concomitant]
     Indication: GASTRITIS
     Dosage: 10 MG, BID
     Route: 048
     Dates: start: 20060614
  10. ASPIRIN [Concomitant]
     Indication: CARDIAC DISORDER
     Dosage: 75 MG
     Route: 048
     Dates: start: 20060530
  11. ATORVASTATIN [Concomitant]
     Dosage: 40 MG
     Route: 048
  12. FUROSEMIDE [Concomitant]
     Indication: BLOOD PRESSURE
     Dosage: 80 MG
     Route: 048
     Dates: start: 20060530
  13. FUROSEMIDE [Concomitant]
     Dosage: 20 MG, QD
     Route: 048
  14. GLICLAZIDE [Concomitant]
     Indication: DIABETES MELLITUS
     Dosage: 80 MG
     Route: 048
  15. GLICLAZIDE [Concomitant]
     Dosage: 40 MG, QD
     Route: 048
  16. PERINDOPRIL ERBUMINE [Concomitant]
     Indication: BLOOD PRESSURE
     Route: 048
  17. ISOSORBIDE MONONITRATE [Concomitant]
     Indication: ANGINA PECTORIS
     Dosage: 60 MG, QD
     Route: 048
     Dates: start: 19990101
  18. ESCITALOPRAM [Concomitant]
     Indication: DEPRESSION
     Dosage: 10MG DAILY
     Route: 048
     Dates: start: 20050101
  19. ESCITALOPRAM [Concomitant]
     Dosage: 15 MG, QD
     Route: 048
  20. ALBUTEROL [Concomitant]
     Indication: ASTHMA
     Dosage: 2 DF, QID
     Dates: start: 19990101
  21. SERETIDE [Concomitant]
     Indication: ASTHMA
     Dosage: 250 MG, BID
     Route: 048
  22. SERETIDE [Concomitant]
     Dosage: 250 MG, BID
     Route: 048

REACTIONS (38)
  - ANGINA PECTORIS [None]
  - ANOREXIA [None]
  - ASPIRATION [None]
  - ASTHMA [None]
  - BACK PAIN [None]
  - CHEST PAIN [None]
  - CHEST X-RAY ABNORMAL [None]
  - CHRONIC OBSTRUCTIVE PULMONARY DISEASE [None]
  - COUGH [None]
  - CREPITATIONS [None]
  - DEATH [None]
  - DEPRESSED LEVEL OF CONSCIOUSNESS [None]
  - DIABETES MELLITUS [None]
  - DIZZINESS [None]
  - FATIGUE [None]
  - GAIT DISTURBANCE [None]
  - GASTRITIS [None]
  - HAEMOGLOBIN DECREASED [None]
  - ILEUS PARALYTIC [None]
  - LOWER RESPIRATORY TRACT INFECTION [None]
  - MALAISE [None]
  - MENTAL IMPAIRMENT [None]
  - MYELODYSPLASTIC SYNDROME [None]
  - NEUTROPHIL COUNT INCREASED [None]
  - OESOPHAGITIS [None]
  - PALLOR [None]
  - PLATELET COUNT INCREASED [None]
  - PNEUMONIA [None]
  - POLYP [None]
  - PYREXIA [None]
  - RED BLOOD CELL COUNT DECREASED [None]
  - RENAL FAILURE [None]
  - RESTLESS LEGS SYNDROME [None]
  - SEDATION [None]
  - SEPSIS [None]
  - SPUTUM DISCOLOURED [None]
  - TARDIVE DYSKINESIA [None]
  - WHITE BLOOD CELL COUNT INCREASED [None]
